FAERS Safety Report 6196833-4 (Version None)
Quarter: 2009Q2

REPORT INFORMATION
  Report Type: 
  Country: None (occurrence: None)
  Receive Date: 20090518
  Receipt Date: 20090506
  Transmission Date: 20091009
  Serious: Yes (Hospitalization, Other)
  Sender: FDA-Public Use
  Company Number: 60060

PATIENT
  Age: 68 Year
  Sex: Male

DRUGS (1)
  1. METHORTEXATE [Suspect]
     Indication: PSORIASIS
     Dosage: 15MG/DAY

REACTIONS (17)
  - ABDOMINAL PAIN [None]
  - ALANINE AMINOTRANSFERASE INCREASED [None]
  - ASPARTATE AMINOTRANSFERASE INCREASED [None]
  - BLOOD ALKALINE PHOSPHATASE INCREASED [None]
  - BLOOD BILIRUBIN INCREASED [None]
  - BLOOD UREA INCREASED [None]
  - BONE MARROW FAILURE [None]
  - CONDITION AGGRAVATED [None]
  - DRUG TOXICITY [None]
  - MELAENA [None]
  - OCCULT BLOOD POSITIVE [None]
  - PSORIASIS [None]
  - RASH PUSTULAR [None]
  - RESPIRATORY RATE INCREASED [None]
  - SCROTAL ULCER [None]
  - SELF-MEDICATION [None]
  - SKIN ULCER [None]
